FAERS Safety Report 7038697-2 (Version None)
Quarter: 2010Q4

REPORT INFORMATION
  Report Type: 
  Country: None (occurrence: None)
  Receive Date: 20101012
  Receipt Date: 20101001
  Transmission Date: 20110411
  Serious: Yes (Other)
  Sender: FDA-Public Use
  Company Number: US-ALLERGAN-1012689US

PATIENT
  Age: 40 Year
  Sex: Male

DRUGS (1)
  1. RESTASIS [Suspect]
     Indication: DRY EYE

REACTIONS (1)
  - PLATELET COUNT DECREASED [None]
